FAERS Safety Report 14205608 (Version 1)
Quarter: 2017Q4

REPORT INFORMATION
  Report Type: Spontaneous
  Country: US (occurrence: US)
  Receive Date: 20171120
  Receipt Date: 20171120
  Transmission Date: 20180321
  Serious: Yes (Hospitalization)
  Sender: FDA-Public Use
  Company Number: US-SA-2017SA163092

PATIENT
  Age: 69 Year
  Sex: Male
  Weight: 104.3 kg

DRUGS (3)
  1. LANTUS SOLOSTAR [Suspect]
     Active Substance: INSULIN GLARGINE
     Indication: TYPE 2 DIABETES MELLITUS
     Dosage: DOSE:30 UNIT(S)
     Route: 051
     Dates: start: 199602
  2. SOLOSTAR [Suspect]
     Active Substance: DEVICE
     Dates: start: 199602
  3. ASPIRIN. [Concomitant]
     Active Substance: ASPIRIN
     Indication: DIABETES MELLITUS
     Route: 065
     Dates: start: 196002

REACTIONS (4)
  - Pain [Unknown]
  - Gait disturbance [Unknown]
  - Product use issue [Unknown]
  - Back disorder [Unknown]

NARRATIVE: CASE EVENT DATE: 2011
